FAERS Safety Report 24166747 (Version 1)
Quarter: 2024Q3

REPORT INFORMATION
  Report Type: Report from Study
  Country: GR (occurrence: GR)
  Receive Date: 20240802
  Receipt Date: 20240802
  Transmission Date: 20241016
  Serious: Yes (Death)
  Sender: EMD SERONO INC
  Company Number: GR-Merck Healthcare KGaA-2024041581

PATIENT
  Age: 50 Year
  Sex: Female

DRUGS (1)
  1. REBIF [Suspect]
     Active Substance: INTERFERON BETA-1A
     Indication: Multiple sclerosis
     Dosage: CARTRIDGE
     Route: 058
     Dates: start: 20240613

REACTIONS (1)
  - Myocardial infarction [Fatal]
